FAERS Safety Report 13910816 (Version 1)
Quarter: 2017Q3

REPORT INFORMATION
  Report Type: Spontaneous
  Country: TW (occurrence: TW)
  Receive Date: 20170828
  Receipt Date: 20170828
  Transmission Date: 20171127
  Serious: Yes (Hospitalization)
  Sender: FDA-Public Use
  Company Number: TW-SA-2017SA151554

PATIENT
  Age: 59 Year
  Sex: Male

DRUGS (2)
  1. PRIFTIN [Suspect]
     Active Substance: RIFAPENTINE
     Indication: INTERFERON GAMMA RELEASE ASSAY POSITIVE
     Dosage: DOSE-150MG 6#
     Route: 048
     Dates: start: 20170815
  2. INH [Concomitant]
     Active Substance: ISONIAZID
     Dosage: DOSE: 300 MG 3#
     Route: 065

REACTIONS (2)
  - Blood pressure decreased [Unknown]
  - Body temperature increased [Unknown]

NARRATIVE: CASE EVENT DATE: 20170815
